FAERS Safety Report 7669444-9 (Version None)
Quarter: 2011Q3

REPORT INFORMATION
  Report Type: 
  Country: None (occurrence: None)
  Receive Date: 20110808
  Receipt Date: 20110726
  Transmission Date: 20111222
  Serious: Yes (Hospitalization)
  Sender: FDA-Public Use
  Company Number: DE-ROCHE-794901

PATIENT
  Sex: Female
  Weight: 73 kg

DRUGS (2)
  1. MCP [Concomitant]
     Indication: NAUSEA
     Route: 048
  2. CAPECITABINE [Suspect]
     Dosage: 7TH CYCLE GIVEN FROM 16-JUN-2011 UNTIL 29-JUN-2011
     Route: 048

REACTIONS (3)
  - SYNCOPE [None]
  - DEHYDRATION [None]
  - DIARRHOEA [None]
